FAERS Safety Report 16297144 (Version 2)
Quarter: 2019Q2

REPORT INFORMATION
  Report Type: Spontaneous
  Country: CA (occurrence: CA)
  Receive Date: 20190510
  Receipt Date: 20190531
  Transmission Date: 20190711
  Serious: Yes (Death)
  Sender: FDA-Public Use
  Company Number: CA-TEVA-2019-CA-1046045

PATIENT
  Age: 50 Year
  Sex: Female
  Weight: 122 kg

DRUGS (7)
  1. CITALOPRAM [Suspect]
     Active Substance: CITALOPRAM HYDROBROMIDE
     Route: 048
  2. TRAZODONE [Suspect]
     Active Substance: TRAZODONE HYDROCHLORIDE
  3. QUETIAPINE. [Suspect]
     Active Substance: QUETIAPINE
  4. LITHIUM CARBONATE. [Concomitant]
     Active Substance: LITHIUM CARBONATE
  5. LORAZEPAM. [Concomitant]
     Active Substance: LORAZEPAM
  6. SYNTHROID - TAB 50MCG [Concomitant]
  7. VITAMIN D3 1000 IU TABLETS [Concomitant]

REACTIONS (1)
  - Toxicity to various agents [Fatal]
